FAERS Safety Report 7561239-X (Version None)
Quarter: 2011Q2

REPORT INFORMATION
  Report Type: 
  Country: None (occurrence: None)
  Receive Date: 20110621
  Receipt Date: 20100923
  Transmission Date: 20111010
  Serious: No
  Sender: FDA-Public Use
  Company Number: US-ASTRAZENECA-2010SE44911

PATIENT
  Age: 884 Month
  Sex: Male

DRUGS (4)
  1. PULMICORT [Suspect]
     Indication: NASAL POLYPS
     Route: 045
     Dates: start: 20100812
  2. PULMICORT [Suspect]
     Route: 045
     Dates: start: 20100101
  3. RHINOCORT [Suspect]
     Indication: NASAL POLYPS
     Route: 045
     Dates: start: 20100812
  4. ANTIBIOTICS [Concomitant]

REACTIONS (2)
  - DISTURBANCE IN ATTENTION [None]
  - MENTAL IMPAIRMENT [None]
